FAERS Safety Report 5649250-7 (Version None)
Quarter: 2008Q1

REPORT INFORMATION
  Report Type: 
  Country: None (occurrence: None)
  Receive Date: 20080304
  Receipt Date: 20071213
  Transmission Date: 20080703
  Serious: No
  Sender: FDA-Public Use
  Company Number: US-BAYER-200716063NA

PATIENT
  Age: 86 Year
  Sex: Male
  Weight: 111 kg

DRUGS (1)
  1. MAGNEVIST [Suspect]
     Indication: NUCLEAR MAGNETIC RESONANCE IMAGING BRAIN
     Dosage: TOTAL DAILY DOSE: 20 ML
     Route: 042
     Dates: start: 20071101, end: 20071101

REACTIONS (3)
  - EYE SWELLING [None]
  - NASAL CONGESTION [None]
  - OCULAR HYPERAEMIA [None]
